FAERS Safety Report 6209845-9 (Version None)
Quarter: 2009Q2

REPORT INFORMATION
  Report Type: 
  Country: None (occurrence: None)
  Receive Date: 20090528
  Receipt Date: 20090528
  Transmission Date: 20091009
  Serious: Yes (Hospitalization)
  Sender: FDA-Public Use
  Company Number: None

PATIENT
  Age: 60 Year
  Sex: Male
  Weight: 75.7 kg

DRUGS (1)
  1. DASATINIB 50 MG (BMS 354825) [Suspect]
     Indication: PROSTATE CANCER
     Dosage: 50 MG 2 TABLETS PO
     Route: 048
     Dates: start: 20090514, end: 20090521

REACTIONS (3)
  - DEHYDRATION [None]
  - NAUSEA [None]
  - VOMITING [None]
